FAERS Safety Report 22023633 (Version 1)
Quarter: 2023Q1

REPORT INFORMATION
  Report Type: Spontaneous
  Country: US (occurrence: US)
  Receive Date: 20230223
  Receipt Date: 20230223
  Transmission Date: 20230418
  Serious: Yes (Other)
  Sender: FDA-Public Use
  Company Number: US-BAUSCH-BL-2023-002912

PATIENT
  Sex: Female

DRUGS (1)
  1. CARDIZEM CD [Suspect]
     Active Substance: DILTIAZEM HYDROCHLORIDE
     Indication: Atrial fibrillation
     Route: 048

REACTIONS (1)
  - Cardiac ablation [Unknown]
